FAERS Safety Report 9247439 (Version 1)
Quarter: 2013Q2

REPORT INFORMATION
  Report Type: Spontaneous
  Country: US (occurrence: US)
  Receive Date: 20130423
  Receipt Date: 20130423
  Transmission Date: 20140414
  Serious: No
  Sender: FDA-Public Use
  Company Number: US-MYLANLABS-2012S1011170

PATIENT
  Age: 87 Year
  Sex: Female

DRUGS (3)
  1. LORAZEPAM [Suspect]
     Indication: INSOMNIA
  2. MORPHINE [Suspect]
     Indication: PAIN
  3. ANXIOLYTICS [Suspect]
     Indication: PAIN

REACTIONS (3)
  - Cognitive disorder [Not Recovered/Not Resolved]
  - Aphasia [Not Recovered/Not Resolved]
  - Sedation [Not Recovered/Not Resolved]
